FAERS Safety Report 13869819 (Version 1)
Quarter: 2017Q3

REPORT INFORMATION
  Report Type: Spontaneous
  Country: US (occurrence: US)
  Receive Date: 20170815
  Receipt Date: 20170815
  Transmission Date: 20171127
  Serious: Yes (Hospitalization)
  Sender: FDA-Public Use
  Company Number: US-PARI RESPIRATORY EQUIPMENT, INC.-2017PAR00021

PATIENT
  Age: 9 Year
  Sex: Female

DRUGS (14)
  1. PEG 3350 [Concomitant]
     Active Substance: POLYETHYLENE GLYCOL 3350
  2. SIMETHICONE (DIMETHICONE) [Concomitant]
     Active Substance: DIMETHICONE
  3. URSO [Suspect]
     Active Substance: URSODIOL
  4. ACIDOPHILUS [Concomitant]
     Active Substance: LACTOBACILLUS ACIDOPHILUS
  5. PULMOZYME [Concomitant]
     Active Substance: DORNASE ALFA
  6. OMEPRAZOLE. [Concomitant]
     Active Substance: OMEPRAZOLE
     Dosage: UNK MG, UNK
  7. RANITIDINE. [Concomitant]
     Active Substance: RANITIDINE
  8. KITABIS PAK [Suspect]
     Active Substance: TOBRAMYCIN
     Indication: CYSTIC FIBROSIS
     Dosage: 300 MG, 2X/DAY
     Route: 055
     Dates: start: 20161123
  9. CETIRIZINE [Concomitant]
     Active Substance: CETIRIZINE HYDROCHLORIDE
  10. IPRATROPIUM SPRAY [Concomitant]
  11. ZENPEP [Concomitant]
     Active Substance: PANCRELIPASE AMYLASE\PANCRELIPASE LIPASE\PANCRELIPASE PROTEASE
  12. SODIUM CHLORIDE 7% [Concomitant]
     Active Substance: SODIUM CHLORIDE
  13. DICYCLOMINE [Concomitant]
     Active Substance: DICYCLOMINE HYDROCHLORIDE
  14. MVW SOFTGELS [Concomitant]

REACTIONS (1)
  - Hospitalisation [Unknown]

NARRATIVE: CASE EVENT DATE: 20170710
